FAERS Safety Report 23146857 (Version 2)
Quarter: 2023Q4

REPORT INFORMATION
  Report Type: Spontaneous
  Country: US (occurrence: US)
  Receive Date: 20231106
  Receipt Date: 20231215
  Transmission Date: 20240110
  Serious: Yes (Hospitalization, Other)
  Sender: FDA-Public Use
  Company Number: US-JNJFOC-20231057233

PATIENT
  Age: 65 Year
  Sex: Female
  Weight: 63.56 kg

DRUGS (11)
  1. RISPERDAL [Interacting]
     Active Substance: RISPERIDONE
     Indication: Psychotic disorder
     Route: 065
     Dates: start: 201812
  2. RISPERDAL [Interacting]
     Active Substance: RISPERIDONE
     Route: 065
     Dates: start: 202205
  3. HALOPERIDOL [Interacting]
     Active Substance: HALOPERIDOL
     Indication: Psychotic disorder
     Route: 065
     Dates: start: 201812
  4. VALBENAZINE TOSYLATE [Interacting]
     Active Substance: VALBENAZINE TOSYLATE
     Indication: Tardive dyskinesia
     Route: 065
     Dates: start: 20210321
  5. LEXAPRO [Concomitant]
     Active Substance: ESCITALOPRAM OXALATE
  6. SEROQUEL [Concomitant]
     Active Substance: QUETIAPINE FUMARATE
     Dosage: 50MG IN THE MORNING AND 75MG AT NIGHT
  7. CLONAZEPAM [Concomitant]
     Active Substance: CLONAZEPAM
  8. CLOZAPINE [Concomitant]
     Active Substance: CLOZAPINE
  9. GEODON [Concomitant]
     Active Substance: ZIPRASIDONE HYDROCHLORIDE\ZIPRASIDONE MESYLATE
  10. LATUDA [Concomitant]
     Active Substance: LURASIDONE HYDROCHLORIDE
  11. SEROQUEL [Concomitant]
     Active Substance: QUETIAPINE FUMARATE

REACTIONS (10)
  - Psychotic disorder [Not Recovered/Not Resolved]
  - Blood sodium decreased [Recovered/Resolved]
  - Hospitalisation [Recovered/Resolved]
  - Blood glucose increased [Unknown]
  - Urinary tract infection [Unknown]
  - Somnolence [Recovered/Resolved]
  - Movement disorder [Unknown]
  - Drug interaction [Unknown]
  - Drug ineffective [Unknown]
  - Glycosylated haemoglobin increased [Unknown]

NARRATIVE: CASE EVENT DATE: 20220101
